FAERS Safety Report 25788889 (Version 1)
Quarter: 2025Q3

REPORT INFORMATION
  Report Type: Spontaneous
  Country: US (occurrence: US)
  Receive Date: 20250911
  Receipt Date: 20250911
  Transmission Date: 20251021
  Serious: Yes (Other)
  Sender: ACCORD
  Company Number: US-MLMSERVICE-20250825-PI622955-00306-1

PATIENT
  Age: 82 Year
  Sex: Male

DRUGS (2)
  1. TACROLIMUS [Suspect]
     Active Substance: TACROLIMUS
     Indication: Immunosuppressant drug therapy
  2. OXYGEN [Concomitant]
     Active Substance: OXYGEN
     Indication: Respiratory failure

REACTIONS (4)
  - Malacoplakia [Unknown]
  - Scrotal infection [Unknown]
  - Escherichia infection [Unknown]
  - Malassezia infection [Unknown]
